FAERS Safety Report 6710043-0 (Version None)
Quarter: 2010Q2

REPORT INFORMATION
  Report Type: 
  Country: None (occurrence: None)
  Receive Date: 20100430
  Receipt Date: 20100422
  Transmission Date: 20101027
  Serious: Yes (Congenital Anomaly)
  Sender: FDA-Public Use
  Company Number: 2010SP022874

PATIENT

DRUGS (1)
  1. IMPLANON [Suspect]
     Indication: MATERNAL DRUGS AFFECTING FOETUS
     Dosage: TRPL
     Route: 064

REACTIONS (2)
  - CONGENITAL ANOMALY [None]
  - MATERNAL DRUGS AFFECTING FOETUS [None]
